FAERS Safety Report 5196803-9 (Version None)
Quarter: 2006Q4

REPORT INFORMATION
  Report Type: 
  Country: None (occurrence: None)
  Receive Date: 20061227
  Receipt Date: 20061214
  Transmission Date: 20070319
  Serious: Yes (Death, Hospitalization)
  Sender: FDA-Public Use
  Company Number: 2006153907

PATIENT
  Age: 41 Year
  Sex: Male

DRUGS (1)
  1. METHYLPREDNISOLONE ACETATE SUSPENSION, STERILE (METHYLPREDNISOLONE) [Suspect]
     Dosage: (40 MG), EPIDURAL
     Route: 008

REACTIONS (13)
  - BLOOD PRESSURE SYSTOLIC INCREASED [None]
  - BRAIN HERNIATION [None]
  - BRAIN OEDEMA [None]
  - BRAIN STEM HAEMORRHAGE [None]
  - CENTRAL NERVOUS SYSTEM NECROSIS [None]
  - COMA [None]
  - HAEMORRHAGIC CEREBRAL INFARCTION [None]
  - HEART RATE INCREASED [None]
  - HYDROCEPHALUS [None]
  - INFLAMMATION [None]
  - ISCHAEMIC CEREBRAL INFARCTION [None]
  - NO THERAPEUTIC RESPONSE [None]
  - RESPIRATORY RATE INCREASED [None]
